FAERS Safety Report 5984278-9 (Version None)
Quarter: 2008Q4

REPORT INFORMATION
  Report Type: 
  Country: None (occurrence: None)
  Receive Date: 20081208
  Receipt Date: 20081127
  Transmission Date: 20090506
  Serious: Yes (Other)
  Sender: FDA-Public Use
  Company Number: DE-ASTRAZENECA-2008PK02604

PATIENT
  Age: 60 Year
  Sex: Female
  Weight: 63 kg

DRUGS (5)
  1. SYMBICORT [Suspect]
     Indication: CHRONIC OBSTRUCTIVE PULMONARY DISEASE
     Dosage: 160/4.5 UG ONE INHALATION TWICE DAILY
     Route: 055
     Dates: start: 20050722
  2. SYMBICORT [Suspect]
     Dosage: 320/9 UG ONE INHALATION TWICE DAILY
     Route: 055
     Dates: start: 20050906
  3. BEROTEC [Concomitant]
  4. VIANI [Concomitant]
     Dosage: 50/250 ONE ONHALATION TWICE DAILY
  5. THEOPHYLLINE [Concomitant]
     Dosage: 300 ONCE DAILY

REACTIONS (2)
  - DYSPNOEA [None]
  - PRODUCTIVE COUGH [None]
